FAERS Safety Report 8094582-9 (Version None)
Quarter: 2012Q1

REPORT INFORMATION
  Report Type: 
  Country: None (occurrence: None)
  Receive Date: 20120131
  Receipt Date: 20120129
  Transmission Date: 20120608
  Serious: Yes (Other)
  Sender: FDA-Public Use
  Company Number: US-PFIZER INC-2012024032

PATIENT
  Sex: Male
  Weight: 86.168 kg

DRUGS (4)
  1. PREVACID [Concomitant]
     Dosage: 40 MG, DAILY
  2. CHANTIX [Suspect]
     Indication: SMOKING CESSATION THERAPY
     Dosage: 0.5 MG, DAILY
     Dates: start: 20120118
  3. MULTI-VITAMINS [Concomitant]
     Dosage: UNK, DAILY
  4. ACETYLSALICYLIC ACID [Concomitant]
     Dosage: UNK, DAILY

REACTIONS (3)
  - DRUG WITHDRAWAL SYNDROME [None]
  - IRRITABILITY [None]
  - NERVOUSNESS [None]
